FAERS Safety Report 8601980-0 (Version None)
Quarter: 2012Q3

REPORT INFORMATION
  Report Type: 
  Country: None (occurrence: None)
  Receive Date: 20120817
  Receipt Date: 20120621
  Transmission Date: 20120928
  Serious: No
  Sender: FDA-Public Use
  Company Number: US-BRISTOL-MYERS SQUIBB COMPANY-16702920

PATIENT
  Age: 37 Year
  Sex: Female

DRUGS (2)
  1. SPRYCEL [Suspect]
     Indication: BREAST CANCER
     Dosage: DOSE NOT SURE
     Dates: start: 20120619
  2. BENADRYL [Concomitant]

REACTIONS (3)
  - HEADACHE [None]
  - FATIGUE [None]
  - BONE PAIN [None]
